FAERS Safety Report 24292374 (Version 1)
Quarter: 2024Q3

REPORT INFORMATION
  Report Type: Spontaneous
  Country: GB (occurrence: GB)
  Receive Date: 20240906
  Receipt Date: 20240906
  Transmission Date: 20241016
  Serious: Yes (Hospitalization, Other)
  Sender: pharmaAND
  Company Number: None

PATIENT
  Age: 34 Year

DRUGS (7)
  1. PEGASYS [Suspect]
     Active Substance: PEGINTERFERON ALFA-2A
     Indication: Essential thrombocythaemia
     Dosage: 90 MCG FORTNIGHTLY
     Route: 058
  2. ACETAMINOPHEN [Concomitant]
     Active Substance: ACETAMINOPHEN
     Indication: Product used for unknown indication
     Dosage: 3-4 G ONCE A DAY
  3. MAGNESIUM [Concomitant]
     Active Substance: MAGNESIUM
     Indication: Product used for unknown indication
     Dosage: ONCE A DAY
  4. VITAMIN D [Concomitant]
     Active Substance: VITAMIN D NOS
     Indication: Product used for unknown indication
  5. ASPIRIN [Concomitant]
     Active Substance: ASPIRIN
     Indication: Product used for unknown indication
     Dosage: 75 MILLIGRAM EVERY 1 DAY
     Dates: end: 202312
  6. ASPIRIN [Concomitant]
     Active Substance: ASPIRIN
     Dosage: 150 MILLIGRAM EVERY 1 DAY
     Dates: start: 202401
  7. FERROUS SULFATE [Concomitant]
     Active Substance: FERROUS SULFATE
     Indication: Product used for unknown indication
     Dosage: 200 MILLIGRAM EVERY 1 DAY

REACTIONS (4)
  - Diplopia [Unknown]
  - Eyelid ptosis [Unknown]
  - Off label use [Recovered/Resolved]
  - Essential thrombocythaemia [Recovered/Resolved]

NARRATIVE: CASE EVENT DATE: 20240607
